FAERS Safety Report 23159061 (Version 2)
Quarter: 2024Q3

REPORT INFORMATION
  Report Type: Report from Study
  Country: CO (occurrence: CO)
  Receive Date: 20231108
  Receipt Date: 20240924
  Transmission Date: 20241017
  Serious: Yes (Hospitalization, Other)
  Sender: UCB
  Company Number: CO-20231101-12678.0

PATIENT
  Age: 39 Year
  Sex: Female
  Weight: 68 kg

DRUGS (3)
  1. CERTOLIZUMAB PEGOL [Suspect]
     Active Substance: CERTOLIZUMAB PEGOL
     Indication: Rheumatoid arthritis
     Dosage: 400 MILLIGRAM, EV 30 DAYS
     Route: 058
     Dates: start: 20230605, end: 20230711
  2. CERTOLIZUMAB PEGOL [Suspect]
     Active Substance: CERTOLIZUMAB PEGOL
     Dosage: 400 MILLIGRAM, EV 30 DAYS
     Route: 058
     Dates: start: 20231212, end: 20240611
  3. PREDNISOLONE [Concomitant]
     Active Substance: PREDNISOLONE
     Indication: Rheumatoid arthritis
     Dosage: UNK

REACTIONS (6)
  - Abdominoplasty [Recovered/Resolved]
  - Skin cosmetic procedure [Not Recovered/Not Resolved]
  - Weight decreased [Not Recovered/Not Resolved]
  - Therapy interrupted [Unknown]
  - Insurance issue [Unknown]
  - Off label use [Unknown]

NARRATIVE: CASE EVENT DATE: 20230605
